FAERS Safety Report 5277301-0 (Version None)
Quarter: 2007Q1

REPORT INFORMATION
  Report Type: 
  Country: None (occurrence: None)
  Receive Date: 20061213
  Receipt Date: 20060720
  Transmission Date: 20070707
  Serious: No
  Sender: FDA-Public Use
  Company Number: 2006UW14754

PATIENT
  Age: 57 Year
  Sex: Female
  Weight: 81.1939 kg

DRUGS (2)
  1. SEROQUEL [Suspect]
     Dates: start: 20060101
  2. GEODON [Suspect]
     Dates: start: 20030101, end: 20060101

REACTIONS (2)
  - DYSTONIA [None]
  - TARDIVE DYSKINESIA [None]
